FAERS Safety Report 8791233 (Version 1)
Quarter: 2012Q4

REPORT INFORMATION
  Report Type: Spontaneous
  Country: US (occurrence: None)
  Receive Date: 20120913
  Receipt Date: 20120913
  Transmission Date: 20130627
  Serious: Yes (Death)
  Sender: FDA-Public Use
  Company Number: None

PATIENT

DRUGS (6)
  1. DEXAMETHASON [Suspect]
     Dates: start: 20120805
  2. DEXAMETHASON [Suspect]
     Dates: start: 20120805
  3. TARCEVA [Suspect]
     Dates: start: 20120807
  4. WARFARIN [Suspect]
     Dates: start: 20120805
  5. X-GEVA SHOT [Concomitant]
  6. NEUTROPENIA [Concomitant]

REACTIONS (3)
  - Respiration abnormal [None]
  - Intestinal perforation [None]
  - Pneumonia [None]
